FAERS Safety Report 8050063-X (Version None)
Quarter: 2012Q1

REPORT INFORMATION
  Report Type: 
  Country: None (occurrence: None)
  Receive Date: 20120117
  Receipt Date: 20120106
  Transmission Date: 20120608
  Serious: Yes (Hospitalization)
  Sender: FDA-Public Use
  Company Number: FR-SANOFI-AVENTIS-2012SA001117

PATIENT
  Age: 80 Year
  Sex: Male

DRUGS (15)
  1. PANTOPRAZOLE [Suspect]
     Route: 048
     Dates: start: 20070901
  2. PREDNISONE TAB [Suspect]
     Indication: RHEUMATOID ARTHRITIS
     Route: 048
     Dates: start: 20031001, end: 20070101
  3. SOTALOL HCL [Suspect]
     Route: 048
     Dates: start: 20060101
  4. ACTEMRA [Suspect]
     Indication: RHEUMATOID ARTHRITIS
     Dates: start: 20110127
  5. PREDNISONE TAB [Suspect]
     Route: 048
     Dates: start: 20090305
  6. ACECLOFENAC [Suspect]
     Route: 048
     Dates: start: 20080901
  7. TRAMADOL HCL [Suspect]
     Route: 048
     Dates: start: 20081001
  8. BONIVA [Suspect]
     Indication: OSTEOPOROSIS PROPHYLAXIS
     Dates: start: 20090901, end: 20110301
  9. ACTONEL [Suspect]
     Route: 048
     Dates: start: 20040801, end: 20070101
  10. ARAVA [Suspect]
     Indication: RHEUMATOID ARTHRITIS
     Route: 048
     Dates: start: 20080124, end: 20081203
  11. METHOTREXATE [Suspect]
     Indication: RHEUMATOID ARTHRITIS
     Route: 048
     Dates: start: 20061201
  12. HUMIRA [Suspect]
     Indication: RHEUMATOID ARTHRITIS
     Dates: start: 20080529, end: 20110101
  13. DOXAZOSIN MESYLATE [Suspect]
     Route: 048
     Dates: start: 20081001
  14. NEXIUM [Suspect]
     Route: 048
     Dates: start: 20060101, end: 20070901
  15. ACETAMINOPHEN [Suspect]
     Route: 048

REACTIONS (1)
  - FEMUR FRACTURE [None]
